FAERS Safety Report 6863863-6 (Version None)
Quarter: 2010Q3

REPORT INFORMATION
  Report Type: 
  Country: None (occurrence: None)
  Receive Date: 20100721
  Receipt Date: 20080311
  Transmission Date: 20110219
  Serious: No
  Sender: FDA-Public Use
  Company Number: US-PFIZER INC-2008023843

PATIENT
  Sex: Female
  Weight: 45.454 kg

DRUGS (3)
  1. CHANTIX [Suspect]
     Indication: SMOKING CESSATION THERAPY
     Route: 048
     Dates: start: 20071001
  2. SPIRIVA [Concomitant]
  3. VITAMINS [Concomitant]

REACTIONS (6)
  - ACTIVITIES OF DAILY LIVING IMPAIRED [None]
  - ASTHENIA [None]
  - CONSTIPATION [None]
  - DIARRHOEA [None]
  - MALAISE [None]
  - VOMITING [None]
